FAERS Safety Report 9387374 (Version 1)
Quarter: 2013Q3

REPORT INFORMATION
  Report Type: Spontaneous
  Country: US (occurrence: US)
  Receive Date: 20130708
  Receipt Date: 20130708
  Transmission Date: 20140515
  Serious: No
  Sender: FDA-Public Use
  Company Number: US-GLAXOSMITHKLINE-A1020220A

PATIENT
  Sex: Female

DRUGS (8)
  1. POTIGA [Suspect]
     Indication: CONVULSION
     Dosage: 50MG THREE TIMES PER DAY
     Route: 048
     Dates: start: 20130315
  2. KEPPRA [Concomitant]
  3. LAMICTAL [Concomitant]
  4. KLONOPIN [Concomitant]
  5. MOTILIUM [Concomitant]
  6. SYNTHROID [Concomitant]
  7. IRON [Concomitant]
  8. MULTIVITAMIN [Concomitant]

REACTIONS (1)
  - Chromaturia [Unknown]
